FAERS Safety Report 5441546-7 (Version None)
Quarter: 2007Q3

REPORT INFORMATION
  Report Type: 
  Country: None (occurrence: None)
  Receive Date: 20070904
  Receipt Date: 20070831
  Transmission Date: 20080115
  Serious: Yes (Hospitalization)
  Sender: FDA-Public Use
  Company Number: US-BRISTOL-MYERS SQUIBB COMPANY-13895248

PATIENT
  Sex: Female

DRUGS (2)
  1. SINEMET [Suspect]
  2. MIRAPEX [Suspect]

REACTIONS (1)
  - PNEUMONIA [None]
